FAERS Safety Report 10022337 (Version 1)
Quarter: 2014Q1

REPORT INFORMATION
  Report Type: Spontaneous
  Country: FR (occurrence: FR)
  Receive Date: 20140319
  Receipt Date: 20140319
  Transmission Date: 20141002
  Serious: Yes (Other)
  Sender: FDA-Public Use
  Company Number: FR-B.I. PHARMACEUTICALS,INC./RIDGEFIELD-2014-BI-11180FF

PATIENT
  Age: 77 Year
  Sex: Male

DRUGS (4)
  1. PRADAXA [Suspect]
     Indication: PRODUCT USED FOR UNKNOWN INDICATION
     Dosage: 110 MG
     Route: 048
     Dates: start: 201202, end: 201308
  2. TEMERIT 5MG [Concomitant]
     Route: 048
  3. ZESTORETIC 20MG/12.5MG [Concomitant]
     Route: 048
  4. VITAMINE B12 BAYER [Concomitant]
     Route: 048

REACTIONS (1)
  - Renal failure [Recovered/Resolved]
